FAERS Safety Report 7112305-4 (Version None)
Quarter: 2010Q4

REPORT INFORMATION
  Report Type: 
  Country: None (occurrence: None)
  Receive Date: 20101119
  Receipt Date: 20100614
  Transmission Date: 20110411
  Serious: No
  Sender: FDA-Public Use
  Company Number: A0866447A

PATIENT
  Age: 85 Year
  Sex: Male

DRUGS (1)
  1. AVODART [Suspect]

REACTIONS (2)
  - FALL [None]
  - MALAISE [None]
